FAERS Safety Report 21594819 (Version 1)
Quarter: 2022Q4

REPORT INFORMATION
  Report Type: Spontaneous
  Country: US (occurrence: None)
  Receive Date: 20221114
  Receipt Date: 20221114
  Transmission Date: 20230112
  Serious: No
  Sender: FDA-Public Use
  Company Number: None

PATIENT
  Age: 69 Year
  Sex: Male
  Weight: 72 kg

DRUGS (8)
  1. PAXLOVID [Suspect]
     Active Substance: NIRMATRELVIR\RITONAVIR
     Indication: COVID-19
     Dosage: FREQUENCY : TWICE A DAY;?
     Route: 048
     Dates: start: 20221104, end: 20221109
  2. Rosuvastatin (stopped during treatment) [Concomitant]
  3. ZETIA [Concomitant]
     Active Substance: EZETIMIBE
  4. METOPROLOL [Concomitant]
     Active Substance: METOPROLOL
  5. ASPIRIN [Concomitant]
     Active Substance: ASPIRIN
  6. VITAMINS [Concomitant]
     Active Substance: VITAMINS
  7. vitamin D 2000mg [Concomitant]
  8. COENZYME Q10 [Concomitant]
     Active Substance: DIETARY SUPPLEMENT\UBIDECARENONE

REACTIONS (1)
  - COVID-19 [None]

NARRATIVE: CASE EVENT DATE: 20221114
